FAERS Safety Report 6211077-5 (Version None)
Quarter: 2009Q2

REPORT INFORMATION
  Report Type: 
  Country: None (occurrence: None)
  Receive Date: 20090602
  Receipt Date: 20090526
  Transmission Date: 20091009
  Serious: Yes (Other)
  Sender: FDA-Public Use
  Company Number: US-JNJCH-2009014581

PATIENT
  Age: 65 Year
  Sex: Male
  Weight: 86.2 kg

DRUGS (1)
  1. ZYRTEC [Suspect]
     Indication: PRURITUS
     Route: 048

REACTIONS (2)
  - PROSTATIC SPECIFIC ANTIGEN INCREASED [None]
  - URINARY RETENTION [None]
